FAERS Safety Report 23201165 (Version 1)
Quarter: 2023Q4

REPORT INFORMATION
  Report Type: Spontaneous
  Country: IT (occurrence: IT)
  Receive Date: 20231118
  Receipt Date: 20231118
  Transmission Date: 20240109
  Serious: Yes (Hospitalization)
  Sender: FDA-Public Use
  Company Number: None

PATIENT
  Age: 64 Year
  Sex: Male

DRUGS (3)
  1. DAPTOMYCIN [Suspect]
     Active Substance: DAPTOMYCIN
     Indication: Skin bacterial infection
     Dosage: 500 MILLIGRAM DAILY; 500 MG DAY
  2. AMPICILLIN AND SULBACTAM [Suspect]
     Active Substance: AMPICILLIN SODIUM\SULBACTAM SODIUM
     Indication: Skin bacterial infection
     Dosage: 4 GRAM DAILY; 2 GRAMS EVERY 12 HOURS
     Dates: start: 20231010, end: 20231020
  3. MEROPENEM [Suspect]
     Active Substance: MEROPENEM
     Indication: Skin bacterial infection
     Dosage: 2 GRAM DAILY; 1 G PER 2
     Dates: start: 20231010, end: 20231020

REACTIONS (1)
  - Dysbiosis [Recovering/Resolving]

NARRATIVE: CASE EVENT DATE: 20231020
